FAERS Safety Report 4303850-5 (Version None)
Quarter: 2004Q1

REPORT INFORMATION
  Report Type: 
  Country: None (occurrence: None)
  Receive Date: 20040225
  Receipt Date: 20031104
  Transmission Date: 20041129
  Serious: Yes (Death, Hospitalization)
  Sender: FDA-Public Use
  Company Number: JP-GLAXOSMITHKLINE-A0433160A

PATIENT
  Age: 60 Year
  Sex: Male

DRUGS (7)
  1. NAVELBINE [Suspect]
     Dosage: 35MGM2 PER DAY
     Route: 042
     Dates: start: 20030801, end: 20030801
  2. THEOLONG [Concomitant]
     Dates: end: 20030804
  3. AMBROXOL HYDROCHLORIDE [Concomitant]
     Dates: end: 20030804
  4. CARBOCISTEINE [Concomitant]
     Dates: end: 20030804
  5. NIFEDIPINE [Concomitant]
     Dates: end: 20030804
  6. FAMOTIDINE [Concomitant]
     Dates: end: 20030804
  7. SELBEX [Concomitant]
     Dates: end: 20030804

REACTIONS (4)
  - CHEST X-RAY ABNORMAL [None]
  - DYSPNOEA [None]
  - INTERSTITIAL LUNG DISEASE [None]
  - PYREXIA [None]
